FAERS Safety Report 25395463 (Version 1)
Quarter: 2025Q2

REPORT INFORMATION
  Report Type: Spontaneous
  Country: GB (occurrence: GB)
  Receive Date: 20250604
  Receipt Date: 20250604
  Transmission Date: 20250717
  Serious: Yes (Life-Threatening, Other)
  Sender: CHATTEM
  Company Number: GB-MHRA-EMIS-242237-6d4c76eb-24d0-4389-9f62-1af14eb54cb0

PATIENT
  Age: 60 Year
  Sex: Female
  Weight: 56 kg

DRUGS (8)
  1. TRIAMCINOLONE ACETONIDE [Suspect]
     Active Substance: TRIAMCINOLONE ACETONIDE
     Indication: Product used for unknown indication
     Route: 065
     Dates: start: 20250402, end: 20250402
  2. COCODAMOL [Concomitant]
     Active Substance: ACETAMINOPHEN\CODEINE PHOSPHATE
     Indication: Product used for unknown indication
     Route: 065
     Dates: start: 20250218, end: 20250402
  3. AMITRIPTYLINE [Concomitant]
     Active Substance: AMITRIPTYLINE
     Indication: Product used for unknown indication
     Route: 065
     Dates: start: 20250218, end: 20250402
  4. HYDROXOCOBALAMIN [Concomitant]
     Active Substance: HYDROXOCOBALAMIN
     Indication: Product used for unknown indication
     Route: 065
     Dates: start: 20250307
  5. TRIAMCINOLONE ACETONIDE [Concomitant]
     Active Substance: TRIAMCINOLONE ACETONIDE
     Indication: Osteoarthritis
     Route: 065
     Dates: start: 20250402
  6. METRONIDAZOLE [Concomitant]
     Active Substance: METRONIDAZOLE
     Indication: Product used for unknown indication
     Route: 065
     Dates: start: 20250411
  7. CHLORAMPHENICOL [Concomitant]
     Active Substance: CHLORAMPHENICOL
     Indication: Product used for unknown indication
     Route: 065
     Dates: start: 20250411
  8. AMITRIPTYLINE [Concomitant]
     Active Substance: AMITRIPTYLINE
     Indication: Product used for unknown indication
     Route: 065
     Dates: start: 20250417

REACTIONS (1)
  - Transient ischaemic attack [Recovered/Resolved with Sequelae]

NARRATIVE: CASE EVENT DATE: 20250409
